FAERS Safety Report 13671865 (Version 1)
Quarter: 2017Q2

REPORT INFORMATION
  Report Type: Spontaneous
  Country: US (occurrence: US)
  Receive Date: 20170620
  Receipt Date: 20170620
  Transmission Date: 20170830
  Serious: No
  Sender: FDA-Public Use
  Company Number: US-HAEMONETICS CORP-2022309

PATIENT
  Age: 30 Year
  Sex: Male
  Weight: 72.73 kg

DRUGS (1)
  1. HAEMONETICS ANTICOAGULANT SODIUM CITRATE [Suspect]
     Active Substance: TRISODIUM CITRATE DIHYDRATE
     Indication: APHERESIS
     Route: 042
     Dates: start: 20170531, end: 20170531

REACTIONS (5)
  - Wrong technique in device usage process [None]
  - Chest discomfort [None]
  - Abdominal pain [None]
  - Citrate toxicity [Recovered/Resolved]
  - Nausea [None]

NARRATIVE: CASE EVENT DATE: 20170531
